FAERS Safety Report 5978979-6 (Version None)
Quarter: 2008Q4

REPORT INFORMATION
  Report Type: 
  Country: None (occurrence: None)
  Receive Date: 20081126
  Receipt Date: 20081114
  Transmission Date: 20090506
  Serious: Yes (Life-Threatening, Hospitalization)
  Sender: FDA-Public Use
  Company Number: JPI-P-004730

PATIENT
  Age: 67 Year
  Sex: Female

DRUGS (7)
  1. LUVOX [Suspect]
     Indication: DEPRESSION
     Dosage: 100 MG (25 MG, 4 IN 1 D), ORAL
     Route: 048
     Dates: end: 20071022
  2. LUVOX [Suspect]
     Indication: DEPRESSION
     Dosage: 100 MG (25 MG, 4 IN 1 D), ORAL
     Route: 048
     Dates: start: 20071031, end: 20080312
  3. MIDODRINE HYDROCHLORIDE [Concomitant]
  4. ETIZOLAM [Concomitant]
  5. REBAMIPIDE [Concomitant]
  6. ZOPICLONE [Concomitant]
  7. VALPROATE SODIUM [Concomitant]

REACTIONS (5)
  - CONVULSION [None]
  - INAPPROPRIATE ANTIDIURETIC HORMONE SECRETION [None]
  - LUNG NEOPLASM MALIGNANT [None]
  - ORTHOSTATIC HYPOTENSION [None]
  - PNEUMONIA [None]
